FAERS Safety Report 25398834 (Version 1)
Quarter: 2025Q2

REPORT INFORMATION
  Report Type: Spontaneous
  Country: ES (occurrence: ES)
  Receive Date: 20250604
  Receipt Date: 20250604
  Transmission Date: 20250716
  Serious: Yes (Other)
  Sender: JOHNSON AND JOHNSON
  Company Number: ES-JNJFOC-20250601780

PATIENT
  Age: 61 Year
  Sex: Female

DRUGS (1)
  1. TALVEY [Suspect]
     Active Substance: TALQUETAMAB-TGVS
     Indication: Plasma cell leukaemia
     Route: 065
     Dates: start: 202501

REACTIONS (9)
  - Tumour flare [Unknown]
  - Off label use [Unknown]
  - Hypophagia [Unknown]
  - Alopecia [Unknown]
  - Mouth ulceration [Unknown]
  - Nausea [Unknown]
  - Nail disorder [Unknown]
  - Headache [Unknown]
  - Dysgeusia [Unknown]
